FAERS Safety Report 23741055 (Version 2)
Quarter: 2024Q3

REPORT INFORMATION
  Report Type: Spontaneous
  Country: CZ (occurrence: CZ)
  Receive Date: 20240415
  Receipt Date: 20240702
  Transmission Date: 20241016
  Serious: Yes (Hospitalization, Other)
  Sender: BRISTOL MYERS SQUIBB
  Company Number: None

PATIENT
  Age: 60 Year
  Sex: Male
  Weight: 72 kg

DRUGS (2)
  1. YERVOY [Suspect]
     Active Substance: IPILIMUMAB
     Indication: Renal cancer
     Dosage: NIVOLUMAB 3MG/KG + IPILIMUMAB 1MG/KG EVERY 21 DAYS, GIVEN 2 CYCLES
     Route: 042
     Dates: start: 20240221
  2. OPDIVO [Suspect]
     Active Substance: NIVOLUMAB
     Indication: Renal cancer
     Dosage: NIVOLUMAB 3MG/KG + IPILIMUMAB 1MG/KG EVERY 21 DAYS, GIVEN 2 CYCLES
     Route: 042
     Dates: start: 20240221, end: 20240312

REACTIONS (2)
  - Proctitis haemorrhagic [Unknown]
  - Diarrhoea [Recovered/Resolved]

NARRATIVE: CASE EVENT DATE: 20240320
